FAERS Safety Report 12534910 (Version 1)
Quarter: 2016Q3

REPORT INFORMATION
  Report Type: Spontaneous
  Country: FR (occurrence: FR)
  Receive Date: 20160707
  Receipt Date: 20160707
  Transmission Date: 20161109
  Serious: Yes (Hospitalization, Other)
  Sender: FDA-Public Use
  Company Number: FR-ASTRAZENECA-2016SE72285

PATIENT
  Age: 70 Year
  Sex: Female

DRUGS (6)
  1. MIRTAZAPINE. [Suspect]
     Active Substance: MIRTAZAPINE
     Indication: BIPOLAR DISORDER
     Dosage: 30 MG, EVERY DAY (NON AZ DRUG)
     Route: 048
     Dates: start: 20160207
  2. XEROQUEL [Suspect]
     Active Substance: QUETIAPINE FUMARATE
     Indication: BIPOLAR DISORDER
     Route: 048
     Dates: start: 20160127, end: 20160210
  3. MIRTAZAPINE. [Suspect]
     Active Substance: MIRTAZAPINE
     Indication: BIPOLAR DISORDER
     Dosage: 15 MG, EVERY DAY (NON AZ DRUG)
     Route: 048
     Dates: start: 20160207
  4. SERESTA [Suspect]
     Active Substance: OXAZEPAM
     Indication: BIPOLAR DISORDER
     Dosage: 150 MG PER DAY (0.5-1-0.5)
     Route: 048
     Dates: start: 20160207
  5. LOXAPINE BASE [Concomitant]
     Indication: BIPOLAR DISORDER
     Dosage: AT 100 MG WITH DECREASING DOSES UNTIL DISCONTINUATION AFTER TEN DAYS
  6. IMOVANE [Concomitant]
     Active Substance: ZOPICLONE
     Indication: BIPOLAR DISORDER

REACTIONS (5)
  - Fall [Recovered/Resolved]
  - Wrist fracture [Unknown]
  - Dyskinesia [Recovered/Resolved]
  - Akathisia [Recovered/Resolved]
  - Dyskinesia [Recovered/Resolved]

NARRATIVE: CASE EVENT DATE: 20160210
